FAERS Safety Report 16421838 (Version 2)
Quarter: 2019Q2

REPORT INFORMATION
  Report Type: Spontaneous
  Country: US (occurrence: US)
  Receive Date: 20190612
  Receipt Date: 20190621
  Transmission Date: 20190711
  Serious: Yes (Other)
  Sender: FDA-Public Use
  Company Number: US-ASTRAZENECA-2018SF15151

PATIENT
  Age: 885 Month
  Sex: Male

DRUGS (24)
  1. PRILOSEC OTC [Suspect]
     Active Substance: OMEPRAZOLE MAGNESIUM
     Route: 048
  2. PREVACID [Suspect]
     Active Substance: LANSOPRAZOLE
     Route: 065
  3. IBUPROFEN. [Concomitant]
     Active Substance: IBUPROFEN
  4. LEVEMIR [Concomitant]
     Active Substance: INSULIN DETEMIR
  5. PRILOSEC [Suspect]
     Active Substance: OMEPRAZOLE MAGNESIUM
     Route: 048
  6. OFLOXACIN. [Concomitant]
     Active Substance: OFLOXACIN
  7. LORATADINE. [Concomitant]
     Active Substance: LORATADINE
  8. CARVEDILOL. [Concomitant]
     Active Substance: CARVEDILOL
  9. AMLODIPINE BESYLATE. [Concomitant]
     Active Substance: AMLODIPINE BESYLATE
  10. KETOTIFEN [Concomitant]
     Active Substance: KETOTIFEN
  11. INDOMETHACIN. [Concomitant]
     Active Substance: INDOMETHACIN
  12. FLUTICASONE. [Concomitant]
     Active Substance: FLUTICASONE
  13. CLOTRIMAZOLE. [Concomitant]
     Active Substance: CLOTRIMAZOLE
  14. NYSTATIN. [Concomitant]
     Active Substance: NYSTATIN
  15. AMOXICILLIN. [Concomitant]
     Active Substance: AMOXICILLIN
  16. FUROSEMIDE. [Concomitant]
     Active Substance: FUROSEMIDE
  17. NIFEDIPINE. [Concomitant]
     Active Substance: NIFEDIPINE
  18. GLIPIZIDE. [Concomitant]
     Active Substance: GLIPIZIDE
  19. TRIAMCINOLONE [Concomitant]
     Active Substance: TRIAMCINOLONE
  20. NEXIUM [Suspect]
     Active Substance: ESOMEPRAZOLE MAGNESIUM
     Route: 048
  21. LOSARTAN. [Concomitant]
     Active Substance: LOSARTAN
  22. PRAVASTATIN. [Concomitant]
     Active Substance: PRAVASTATIN
  23. DOXAZOSIN [Concomitant]
     Active Substance: DOXAZOSIN\DOXAZOSIN MESYLATE
  24. HYDRALAZINE [Concomitant]
     Active Substance: HYDRALAZINE HYDROCHLORIDE

REACTIONS (7)
  - Renal injury [Unknown]
  - Tubulointerstitial nephritis [Unknown]
  - Chronic kidney disease [Unknown]
  - Renal failure [Unknown]
  - Acute kidney injury [Unknown]
  - End stage renal disease [Unknown]
  - Dyspepsia [Unknown]

NARRATIVE: CASE EVENT DATE: 201510
